FAERS Safety Report 9375525 (Version 1)
Quarter: 2013Q2

REPORT INFORMATION
  Report Type: Spontaneous
  Country: JP (occurrence: JP)
  Receive Date: 20130628
  Receipt Date: 20130628
  Transmission Date: 20140414
  Serious: Yes (Hospitalization)
  Sender: FDA-Public Use
  Company Number: PHHY2013JP047184

PATIENT
  Age: 80 Year
  Sex: Male
  Weight: 67 kg

DRUGS (11)
  1. LOCHOL [Suspect]
     Indication: HYPERCHOLESTEROLAEMIA
     Dosage: 40 MG DAILY
     Route: 048
     Dates: start: 2007, end: 20130312
  2. LOCHOL [Suspect]
     Dosage: 30 MG DAILY
     Route: 048
     Dates: start: 20130313, end: 20130501
  3. PREDONINE [Concomitant]
     Indication: ANTI-NEUTROPHIL CYTOPLASMIC ANTIBODY POSITIVE VASCULITIS
     Dosage: 7.5 MG
     Route: 048
  4. KREMEZIN [Concomitant]
     Indication: RENAL FAILURE CHRONIC
     Dosage: 6 G
     Route: 048
  5. WARFARIN [Concomitant]
     Indication: DEEP VEIN THROMBOSIS
     Dosage: 1.5 MG,
     Route: 048
  6. PARIET [Concomitant]
     Indication: GASTROOESOPHAGEAL REFLUX DISEASE
     Dosage: 10 MG
     Route: 048
  7. ZYLORIC [Concomitant]
     Indication: HYPERURICAEMIA
     Dosage: 100 MG,
     Route: 048
  8. ALFAROL [Concomitant]
     Indication: OSTEOPOROSIS
     Dosage: 0.25 UG,
     Route: 048
  9. SUREPOST [Concomitant]
     Indication: DIABETES MELLITUS
     Dosage: 1.5 MG,
     Route: 048
  10. GLUCOBAY [Concomitant]
     Indication: DIABETES MELLITUS
     Dosage: 300 MG,
     Route: 048
  11. PERSANTIN-L [Concomitant]
     Indication: NEPHROTIC SYNDROME
     Dosage: 300 MG,
     Route: 048

REACTIONS (7)
  - Rhabdomyolysis [Recovering/Resolving]
  - Malaise [Recovered/Resolved]
  - Pyrexia [Recovered/Resolved]
  - Muscular weakness [Unknown]
  - Inflammation [Unknown]
  - Renal failure [Unknown]
  - Concomitant disease progression [Unknown]
